FAERS Safety Report 7444462-4 (Version None)
Quarter: 2011Q2

REPORT INFORMATION
  Report Type: 
  Country: None (occurrence: None)
  Receive Date: 20110427
  Receipt Date: 20110427
  Transmission Date: 20111010
  Serious: Yes (Other)
  Sender: FDA-Public Use
  Company Number: None

PATIENT
  Age: 47 Year
  Sex: Female
  Weight: 63.5036 kg

DRUGS (3)
  1. IBUPROFEN [Suspect]
     Indication: PAIN MANAGEMENT
     Dosage: 1 PILL 3X A DAY PO
     Route: 048
     Dates: start: 20090515, end: 20090715
  2. IBUPROFEN [Suspect]
     Indication: PERIARTHRITIS
     Dosage: 1 PILL 3X A DAY PO
     Route: 048
     Dates: start: 20090515, end: 20090715
  3. MOTRIN [Concomitant]

REACTIONS (1)
  - TINNITUS [None]
